FAERS Safety Report 24960572 (Version 1)
Quarter: 2025Q1

REPORT INFORMATION
  Report Type: Spontaneous
  Country: US (occurrence: None)
  Receive Date: 20250211
  Receipt Date: 20250211
  Transmission Date: 20250409
  Serious: Yes (Disabling)
  Sender: FDA-CTU
  Company Number: None

PATIENT
  Age: 37 Year
  Sex: Female
  Weight: 115 kg

DRUGS (2)
  1. RYBELSUS [Suspect]
     Active Substance: SEMAGLUTIDE
     Indication: Diabetes mellitus
     Route: 048
     Dates: start: 20250203, end: 20250208
  2. MELATONIN [Concomitant]
     Active Substance: MELATONIN

REACTIONS (8)
  - Headache [None]
  - Nausea [None]
  - Vomiting [None]
  - Chills [None]
  - Decreased appetite [None]
  - Gastrointestinal disorder [None]
  - Pain [None]
  - Eructation [None]

NARRATIVE: CASE EVENT DATE: 20250206
